FAERS Safety Report 9096058 (Version 2)
Quarter: 2013Q1

REPORT INFORMATION
  Report Type: Spontaneous
  Country: JP (occurrence: JP)
  Receive Date: 20130207
  Receipt Date: 20130329
  Transmission Date: 20140127
  Serious: Yes (Life-Threatening)
  Sender: FDA-Public Use
  Company Number: PHHY2013JP011707

PATIENT
  Age: 80 Year
  Sex: Female
  Weight: 64 kg

DRUGS (1)
  1. TEGRETOL [Suspect]
     Indication: EPILEPSY
     Dosage: 200 MG, DAILY
     Route: 048
     Dates: start: 20130107, end: 20130202

REACTIONS (2)
  - Interstitial lung disease [Recovering/Resolving]
  - Dyspnoea [Unknown]
